FAERS Safety Report 8984266 (Version 2)
Quarter: 2013Q1

REPORT INFORMATION
  Report Type: Report from Study
  Country: US (occurrence: US)
  Receive Date: 20121226
  Receipt Date: 20130214
  Transmission Date: 20140127
  Serious: Yes (Other)
  Sender: FDA-Public Use
  Company Number: US-JNJFOC-20121209651

PATIENT
  Sex: Male
  Weight: 102.97 kg

DRUGS (9)
  1. REMICADE [Suspect]
     Indication: RHEUMATOID ARTHRITIS
     Route: 042
     Dates: start: 2012, end: 201211
  2. PREDNISONE [Concomitant]
     Indication: ARTHRITIS
     Route: 065
  3. Z PAK [Concomitant]
     Indication: NASOPHARYNGITIS
     Route: 065
  4. METHOTREXATE [Concomitant]
     Indication: ARTHRITIS
     Route: 065
  5. ACYCLOVIR [Concomitant]
     Indication: HERPES VIRUS INFECTION
     Route: 065
  6. SYNTHROID [Concomitant]
     Indication: THYROID DISORDER
     Route: 065
  7. LEUCOVORIN [Concomitant]
     Indication: BLOOD PRESSURE
     Route: 065
  8. LISINOPRIL [Concomitant]
     Indication: BLOOD PRESSURE
     Route: 065
  9. ASPIRIN [Concomitant]
     Route: 065

REACTIONS (1)
  - Lung disorder [Recovered/Resolved]
